FAERS Safety Report 20003909 (Version 2)
Quarter: 2021Q4

REPORT INFORMATION
  Report Type: Report from Study
  Country: US (occurrence: US)
  Receive Date: 20211027
  Receipt Date: 20211116
  Transmission Date: 20220303
  Serious: No
  Sender: FDA-Public Use
  Company Number: US-JNJFOC-20211012177

PATIENT
  Age: 44 Year
  Sex: Male

DRUGS (1)
  1. TREMFYA [Suspect]
     Active Substance: GUSELKUMAB
     Indication: Psoriasis
     Route: 058
     Dates: start: 20210406

REACTIONS (4)
  - Device leakage [Unknown]
  - Inappropriate schedule of product administration [Unknown]
  - Underdose [Unknown]
  - Psoriasis [Unknown]

NARRATIVE: CASE EVENT DATE: 20210101
